FAERS Safety Report 8817619 (Version 1)
Quarter: 2012Q4

REPORT INFORMATION
  Report Type: 
  Country: US (occurrence: US)
  Receive Date: 20121001
  Receipt Date: 20121001
  Transmission Date: 20130627
  Serious: No
  Sender: FDA-Public Use
  Company Number: US-TEVA-360522USA

PATIENT
  Sex: Male

DRUGS (2)
  1. NUVIGIL [Suspect]
     Indication: ATTENTION DEFICIT/HYPERACTIVITY DISORDER
     Dosage: 250 Milligram Daily;
     Route: 048
     Dates: start: 2012
  2. NUVIGIL [Suspect]
     Indication: ATTENTION DEFICIT/HYPERACTIVITY DISORDER
     Dosage: 150 Milligram Daily; 5-6 doses
     Route: 048
     Dates: start: 2012, end: 2012

REACTIONS (2)
  - Off label use [Unknown]
  - Therapeutic response unexpected [Unknown]
